FAERS Safety Report 4450326-0 (Version None)
Quarter: 2004Q3

REPORT INFORMATION
  Report Type: 
  Country: None (occurrence: None)
  Receive Date: 20040914
  Receipt Date: 20040825
  Transmission Date: 20050211
  Serious: Yes (Hospitalization)
  Sender: FDA-Public Use
  Company Number: F01200402580

PATIENT
  Age: 78 Year
  Sex: Female

DRUGS (2)
  1. (OXALIPLATIN) - SOLUTION - 242 MG [Suspect]
     Indication: COLON CANCER
     Dosage: 242 MG Q3W, INTRAVENOUS NOS: TIME TO ONSET: 1 DAY
     Route: 042
     Dates: start: 20040812, end: 20040812
  2. (CAPECITABINE) - FORM : UNKNOWN - UNIT DOSE : UNKNOWN [Suspect]

REACTIONS (4)
  - DYSPNOEA [None]
  - HYPOTENSION [None]
  - HYPOTONIA [None]
  - LARYNGOSPASM [None]
